FAERS Safety Report 16111811 (Version 2)
Quarter: 2019Q3

REPORT INFORMATION
  Report Type: Spontaneous
  Country: US (occurrence: US)
  Receive Date: 20190325
  Receipt Date: 20190708
  Transmission Date: 20191004
  Serious: No
  Sender: FDA-Public Use
  Company Number: US-SA-2019SA077931

PATIENT
  Sex: Male

DRUGS (1)
  1. DUPIXENT [Suspect]
     Active Substance: DUPILUMAB
     Indication: DERMATITIS ATOPIC
     Dosage: 300 MG, QOW
     Route: 058
     Dates: start: 20181205

REACTIONS (5)
  - Lymphadenopathy [Unknown]
  - Headache [Unknown]
  - Sleep apnoea syndrome [Unknown]
  - Sinusitis [Unknown]
  - Hypersensitivity [Unknown]
